FAERS Safety Report 5820527-5 (Version None)
Quarter: 2008Q3

REPORT INFORMATION
  Report Type: 
  Country: None (occurrence: None)
  Receive Date: 20080724
  Receipt Date: 20070917
  Transmission Date: 20090109
  Serious: No
  Sender: FDA-Public Use
  Company Number: A0683390A

PATIENT
  Age: 80 Year
  Sex: Male

DRUGS (4)
  1. AVANDIA [Suspect]
     Indication: DRUG USE FOR UNKNOWN INDICATION
     Route: 048
  2. PRAMLINTIDE [Concomitant]
     Indication: DRUG USE FOR UNKNOWN INDICATION
     Dosage: 120MCG TWICE PER DAY
     Route: 042
     Dates: start: 20050101
  3. COUMADIN [Concomitant]
     Route: 042
  4. INSULIN [Concomitant]

REACTIONS (1)
  - SWELLING [None]
